FAERS Safety Report 9744859 (Version 3)
Quarter: 2014Q1

REPORT INFORMATION
  Report Type: Spontaneous
  Country: IT (occurrence: IT)
  Receive Date: 20131211
  Receipt Date: 20140221
  Transmission Date: 20141002
  Serious: Yes (Death, Hospitalization)
  Sender: FDA-Public Use
  Company Number: IT-AMGEN-ITASP2013086373

PATIENT
  Age: 74 Year
  Sex: Male
  Weight: 80 kg

DRUGS (10)
  1. VECTIBIX [Suspect]
     Indication: ADENOCARCINOMA OF COLON
     Dosage: 510 MG, CYCLICAL
     Route: 042
     Dates: start: 20130730, end: 20131113
  2. CLOPIDOGREL [Concomitant]
     Dosage: 75 MG, UNK
     Route: 048
     Dates: start: 20121001, end: 20131113
  3. CARDIOASPIRIN [Concomitant]
     Dosage: 100 MG, UNK
     Route: 048
     Dates: start: 20130101, end: 20131113
  4. LASIX                              /00032601/ [Concomitant]
     Dosage: 25 MG, UNK
     Route: 048
     Dates: start: 20130101, end: 20131113
  5. LUVION                             /00252501/ [Concomitant]
     Dosage: 25 MG, UNK
     Route: 048
     Dates: start: 20130101, end: 20131113
  6. ESAPENT [Concomitant]
     Dosage: 1 GR, UNK
     Route: 048
     Dates: start: 20130101, end: 20131113
  7. TRIATEC                            /00116401/ [Concomitant]
     Dosage: UNK
     Dates: start: 20130101, end: 20131113
  8. CONGESCOR [Concomitant]
     Dosage: 1.25 MG, UNK
     Route: 048
     Dates: start: 20130101, end: 20131113
  9. MINITRAN                           /00003201/ [Concomitant]
     Dosage: 10 MG, UNK
     Route: 062
     Dates: start: 20130101, end: 20131113
  10. LYRICA [Concomitant]
     Dosage: 300 MG, UNK
     Route: 048
     Dates: start: 20130101, end: 20131113

REACTIONS (3)
  - Lymphangiosis carcinomatosa [Fatal]
  - Disease progression [Fatal]
  - Interstitial lung disease [Not Recovered/Not Resolved]
